FAERS Safety Report 14556390 (Version 1)
Quarter: 2018Q1

REPORT INFORMATION
  Report Type: Spontaneous
  Country: US (occurrence: US)
  Receive Date: 20180217
  Receipt Date: 20180217
  Transmission Date: 20180509
  Serious: No
  Sender: FDA-Public Use
  Company Number: None

PATIENT
  Sex: Male

DRUGS (1)
  1. SUTENT [Suspect]
     Active Substance: SUNITINIB MALATE
     Indication: MALIGNANT PERITONEAL NEOPLASM
     Dosage: QD FOR 3 WEEKS, THEN 1 WEEK OFF
     Route: 048
     Dates: start: 20171219

REACTIONS (2)
  - Rash [None]
  - Hypertension [None]
